FAERS Safety Report 8585318-3 (Version None)
Quarter: 2012Q3

REPORT INFORMATION
  Report Type: 
  Country: None (occurrence: None)
  Receive Date: 20120810
  Receipt Date: 20120802
  Transmission Date: 20120928
  Serious: Yes (Hospitalization)
  Sender: FDA-Public Use
  Company Number: US-SANOFI-AVENTIS-2012SA055708

PATIENT
  Age: 83 Year
  Sex: Female

DRUGS (1)
  1. ALLEGRA [Suspect]
     Route: 048
     Dates: start: 20120701, end: 20120701

REACTIONS (5)
  - MUSCULAR WEAKNESS [None]
  - CLONUS [None]
  - MUSCLE TWITCHING [None]
  - EXCESSIVE EYE BLINKING [None]
  - HEMIPARESIS [None]
